FAERS Safety Report 4424729-4 (Version None)
Quarter: 2004Q3

REPORT INFORMATION
  Report Type: 
  Country: None (occurrence: None)
  Receive Date: 20040805
  Receipt Date: 20040728
  Transmission Date: 20050211
  Serious: Yes (Other)
  Sender: FDA-Public Use
  Company Number: HQWYE824230JUN04

PATIENT
  Age: 70 Year
  Sex: Male

DRUGS (6)
  1. CORDARONE [Suspect]
     Dosage: 200 MG 1X PER 1 DAY
     Route: 048
     Dates: start: 20030601
  2. BUMETANIDE [Concomitant]
  3. ALDACTONE [Concomitant]
  4. WARFARIN          (WARFARIN) [Concomitant]
  5. COVERSYL                (PERINDOPRIL) [Concomitant]
  6. CARVEDILOL [Concomitant]

REACTIONS (1)
  - COLOUR BLINDNESS ACQUIRED [None]
